FAERS Safety Report 10229747 (Version 2)
Quarter: 2014Q2

REPORT INFORMATION
  Report Type: Report from Study
  Country: US (occurrence: US)
  Receive Date: 20140611
  Receipt Date: 20140611
  Transmission Date: 20141212
  Serious: Yes (Other)
  Sender: FDA-Public Use
  Company Number: PHEH2013US018895

PATIENT
  Age: 27 Year
  Sex: Female

DRUGS (4)
  1. GILENYA [Suspect]
     Indication: MULTIPLE SCLEROSIS
     Dosage: 0.5 MG, UNK
     Route: 048
     Dates: start: 20130118, end: 20130907
  2. BACLOFEN [Concomitant]
     Dosage: 10 MG, UNK
  3. TRAZODONE [Concomitant]
     Dosage: 50 MG, UNK
  4. CELEXA [Concomitant]
     Dosage: 20 MG, UNK

REACTIONS (3)
  - Complication of pregnancy [Unknown]
  - Multiple sclerosis relapse [Unknown]
  - Maternal exposure during pregnancy [Unknown]
